FAERS Safety Report 11594811 (Version 1)
Quarter: 2015Q4

REPORT INFORMATION
  Report Type: Report from Study
  Country: US (occurrence: US)
  Receive Date: 20151005
  Receipt Date: 20151005
  Transmission Date: 20160304
  Serious: No
  Sender: FDA-Public Use
  Company Number: PHEH2015US019127

PATIENT
  Age: 27 Year
  Sex: Female

DRUGS (2)
  1. GILENYA [Suspect]
     Active Substance: FINGOLIMOD HYDROCHLORIDE
     Indication: MULTIPLE SCLEROSIS
     Dosage: 0.5 MG, QD
     Route: 048
     Dates: start: 20150921
  2. TYSABRI [Suspect]
     Active Substance: NATALIZUMAB
     Indication: PRODUCT USED FOR UNKNOWN INDICATION
     Dosage: UNK
     Route: 065

REACTIONS (13)
  - Acne [Unknown]
  - Band sensation [Unknown]
  - Headache [Unknown]
  - Productive cough [Unknown]
  - Fatigue [Unknown]
  - Blister [Unknown]
  - Drug withdrawal syndrome [Unknown]
  - Chest pain [Unknown]
  - Hypersensitivity [Unknown]
  - Oral mucosal blistering [Unknown]
  - Blister rupture [Unknown]
  - Condition aggravated [Unknown]
  - Facial pain [Unknown]

NARRATIVE: CASE EVENT DATE: 20150916
